FAERS Safety Report 9512378 (Version 1)
Quarter: 2013Q1

REPORT INFORMATION
  Report Type: Spontaneous
  Country: US (occurrence: None)
  Receive Date: 20130305
  Receipt Date: 20130305
  Transmission Date: 20140127
  Serious: Yes (Other)
  Sender: FDA-Public Use
  Company Number: 163-21880-12103111

PATIENT
  Age: 73 Year
  Sex: Female
  Weight: 84.82 kg

DRUGS (29)
  1. REVLIMID (LENALIDOMIDE) (CAPSULES) [Suspect]
     Indication: MYELODYSPLASTIC SYNDROME
     Dosage: 5 MG, 21 IN 28 D, PO
     Route: 048
     Dates: start: 20121002
  2. BLOOD (BLOOD AND RELATED PRODUCTS) (UNKKNOWN) [Concomitant]
  3. ACIPHEX (RABEPRAZOLE SODIUM) (UNKNOWN) [Concomitant]
  4. AMARYL (GLIMEPIRIDE) (UNKNOWN) [Concomitant]
  5. AMBIEN (ZOLPIDEM TARTRATE) (UNKNOWN) [Concomitant]
  6. ATORVASTATIN (ATORVASTATIN) (UNKNOWN) [Concomitant]
  7. BABY ASPIRIN (ACETYLSALICYLIC ACID) (UNKNOWN) [Concomitant]
  8. EVISTA (RALOXIFENE HYDROCHLORIDE) (UNKNOWN) [Concomitant]
  9. EXELON (RIVASTIGMINE TARTRATE) (POULICE OR PATCH) [Concomitant]
  10. FISH OIL (FISH OIL) (UNKNOWN) [Concomitant]
  11. GLUCAGON (GLUCAGON) (UNKNOWN) [Concomitant]
  12. HUMALOG (INSULIN LISPRO) (UNKNOWN) [Concomitant]
  13. INSULIN (INSULIN) (UNKNOWN) [Concomitant]
  14. IRON [Concomitant]
  15. ISOSORB MONO (UNKNOWN) [Concomitant]
  16. LIDODERM (LIDOCAINE) (POULTICE OR PATCH) [Concomitant]
  17. LYRICA (PREGABALIN) (UNKNOWN) [Concomitant]
  18. MAGNESIUM (MAGNESIUM) (UNKNOWN0 [Concomitant]
  19. METANX (METANX) (UNKNOWN) [Concomitant]
  20. METOPROLOL (METOPROLOL) (UNKNOWN) [Concomitant]
  21. MIRALAX (MACROGOL) (UNKNOWN) [Concomitant]
  22. MVI (MVI) (UNKNOWN) [Concomitant]
  23. NITROSTAT (GLYCERYL TRINITRATE) (UNKNOWN) [Concomitant]
  24. OXYCONTIN (OXYCODONE HYDROCHLORIDE) (UNKNOWN) [Concomitant]
  25. REMERON (MIRTAZAPINE) (UNKNOWN) [Concomitant]
  26. STALEVO (STALEVO) (UNKNOWN) [Concomitant]
  27. STOOL SOFTENER (DOCUSATE SODIUM) (UNKNOWN) [Concomitant]
  28. TORSEMIDE (TORASEMIDE) (UNKNOWN) [Concomitant]
  29. VITAMIN D (ERGOCALCIFEROL) (UNKNOWN) [Concomitant]

REACTIONS (2)
  - Haemoglobin decreased [None]
  - Weight decreased [None]
